FAERS Safety Report 7609047-5 (Version None)
Quarter: 2011Q3

REPORT INFORMATION
  Report Type: 
  Country: None (occurrence: None)
  Receive Date: 20110714
  Receipt Date: 20110710
  Transmission Date: 20111222
  Serious: Yes (Other)
  Sender: FDA-Public Use
  Company Number: TW-ROCHE-789340

PATIENT
  Sex: Female

DRUGS (3)
  1. XELODA [Suspect]
     Route: 048
  2. XELODA [Suspect]
     Route: 048
  3. HERCEPTIN [Concomitant]
     Route: 042

REACTIONS (1)
  - HAEMOLYSIS [None]
